FAERS Safety Report 16119713 (Version 1)
Quarter: 2019Q1

REPORT INFORMATION
  Report Type: Report from Study
  Country: US (occurrence: US)
  Receive Date: 20190326
  Receipt Date: 20190326
  Transmission Date: 20190418
  Serious: Yes (Hospitalization)
  Sender: FDA-Public Use
  Company Number: US-ACTELION-A-NJ2018-177260

PATIENT
  Sex: Female
  Weight: 73.47 kg

DRUGS (1)
  1. OPSUMIT [Suspect]
     Active Substance: MACITENTAN
     Indication: PULMONARY ARTERIAL HYPERTENSION
     Dosage: 10 MG, QD
     Route: 048
     Dates: start: 20180718

REACTIONS (7)
  - Joint swelling [Recovering/Resolving]
  - Dyspnoea [Unknown]
  - Pulmonary hypertension [Unknown]
  - Urinary tract infection [Unknown]
  - Weight increased [Unknown]
  - Hospitalisation [Unknown]
  - Condition aggravated [Recovering/Resolving]
